FAERS Safety Report 9187332 (Version 1)
Quarter: 2013Q1

REPORT INFORMATION
  Report Type: Spontaneous
  Country: US (occurrence: US)
  Receive Date: 20130325
  Receipt Date: 20130325
  Transmission Date: 20140127
  Serious: Yes (Other)
  Sender: FDA-Public Use
  Company Number: US-JNJFOC-20130310118

PATIENT
  Sex: Female
  Weight: 90.72 kg

DRUGS (8)
  1. SANDOZ FENTANYL MATRIX TRANSDERMAL SYSTEM [Suspect]
     Indication: RHEUMATOID ARTHRITIS
     Route: 062
     Dates: start: 201303
  2. MOBIC [Suspect]
     Indication: PRODUCT USED FOR UNKNOWN INDICATION
     Route: 065
  3. LISINOPRIL [Suspect]
     Indication: PRODUCT USED FOR UNKNOWN INDICATION
     Route: 065
  4. TOVIAZ [Concomitant]
     Indication: URINARY INCONTINENCE
     Route: 048
  5. HYDRALAZINE [Concomitant]
     Indication: ANXIETY
     Route: 048
  6. LEVOTHYROXINE [Concomitant]
     Indication: HYPOTHYROIDISM
     Route: 048
  7. RITUXAN [Concomitant]
     Indication: RHEUMATOID ARTHRITIS
     Route: 065
     Dates: start: 201302
  8. OXYCODONE [Concomitant]
     Indication: PAIN
     Route: 048

REACTIONS (5)
  - Local swelling [Recovering/Resolving]
  - Fluid retention [Recovering/Resolving]
  - Drug ineffective [Not Recovered/Not Resolved]
  - Product quality issue [Unknown]
  - Product quality issue [Unknown]
